FAERS Safety Report 5821995-5 (Version None)
Quarter: 2008Q3

REPORT INFORMATION
  Report Type: 
  Country: None (occurrence: None)
  Receive Date: 20080724
  Receipt Date: 20080715
  Transmission Date: 20090109
  Serious: Yes (Hospitalization, Other)
  Sender: FDA-Public Use
  Company Number: JP-MERCK-0807USA00712

PATIENT
  Age: 38 Year
  Sex: Female
  Weight: 99 kg

DRUGS (4)
  1. DECADRON SRC [Suspect]
     Indication: 21-HYDROXYLASE DEFICIENCY
     Route: 048
  2. DECADRON SRC [Suspect]
     Route: 048
  3. DECADRON SRC [Suspect]
     Route: 048
  4. DECADRON SRC [Suspect]
     Route: 048

REACTIONS (4)
  - CUSHING'S SYNDROME [None]
  - DIABETES MELLITUS [None]
  - INCREASED APPETITE [None]
  - OBESITY [None]
